FAERS Safety Report 17764646 (Version 1)
Quarter: 2020Q2

REPORT INFORMATION
  Report Type: Report from Study
  Country: None (occurrence: CA)
  Receive Date: 20200511
  Receipt Date: 20200511
  Transmission Date: 20200714
  Serious: Yes (Other)
  Sender: FDA-Public Use
  Company Number: CA-ABBVIE-20K-028-3397100-00

PATIENT
  Age: 35 Year
  Sex: Female

DRUGS (1)
  1. HUMIRA [Suspect]
     Active Substance: ADALIMUMAB
     Indication: HIDRADENITIS
     Route: 058
     Dates: start: 20151026

REACTIONS (3)
  - Ear canal stenosis [Recovered/Resolved]
  - Subcutaneous abscess [Not Recovered/Not Resolved]
  - Excessive skin [Recovered/Resolved]

NARRATIVE: CASE EVENT DATE: 202001
